FAERS Safety Report 26169084 (Version 1)
Quarter: 2025Q4

REPORT INFORMATION
  Report Type: Spontaneous
  Country: JP (occurrence: JP)
  Receive Date: 20251217
  Receipt Date: 20251217
  Transmission Date: 20260117
  Serious: Yes (Hospitalization)
  Sender: ASTELLAS
  Company Number: JP-ASTELLAS-2025-AER-056015

PATIENT
  Age: 77 Year
  Sex: Male
  Weight: 60 kg

DRUGS (22)
  1. VYLOY [Suspect]
     Active Substance: ZOLBETUXIMAB-CLZB
     Indication: Gastric cancer stage IV
     Dosage: 800 MG/M2
     Route: 042
     Dates: start: 20250724, end: 20250724
  2. VYLOY [Suspect]
     Active Substance: ZOLBETUXIMAB-CLZB
     Dosage: 600 MG/M2
     Route: 042
     Dates: start: 20250828, end: 20250918
  3. CAPECITABINE [Concomitant]
     Active Substance: CAPECITABINE
     Indication: Gastric cancer stage IV
     Route: 048
     Dates: start: 20250724, end: 20250807
  4. CAPECITABINE [Concomitant]
     Active Substance: CAPECITABINE
     Route: 048
     Dates: start: 20250828, end: 20250911
  5. CAPECITABINE [Concomitant]
     Active Substance: CAPECITABINE
     Route: 048
     Dates: start: 20250918, end: 20251002
  6. OXALIPLATIN [Concomitant]
     Active Substance: OXALIPLATIN
     Indication: Gastric cancer stage IV
     Route: 042
     Dates: start: 20250630, end: 20250630
  7. OXALIPLATIN [Concomitant]
     Active Substance: OXALIPLATIN
     Route: 042
     Dates: start: 20250724, end: 20250724
  8. OXALIPLATIN [Concomitant]
     Active Substance: OXALIPLATIN
     Route: 042
     Dates: start: 20250828, end: 20250828
  9. OXALIPLATIN [Concomitant]
     Active Substance: OXALIPLATIN
     Route: 042
     Dates: start: 20250918, end: 20250918
  10. FOSNETUPITANT CHLORIDE HYDROCHLORIDE [Concomitant]
     Active Substance: FOSNETUPITANT CHLORIDE HYDROCHLORIDE
     Indication: Gastric cancer stage IV
     Route: 042
     Dates: start: 20250918, end: 20250918
  11. FOSNETUPITANT CHLORIDE HYDROCHLORIDE [Concomitant]
     Active Substance: FOSNETUPITANT CHLORIDE HYDROCHLORIDE
     Route: 042
     Dates: start: 20250724, end: 20250724
  12. FOSNETUPITANT CHLORIDE HYDROCHLORIDE [Concomitant]
     Active Substance: FOSNETUPITANT CHLORIDE HYDROCHLORIDE
     Route: 042
     Dates: start: 20250828, end: 20250828
  13. DECADRON [Concomitant]
     Active Substance: DEXAMETHASONE
     Indication: Gastric cancer stage IV
     Route: 042
     Dates: start: 20250918, end: 20250918
  14. DECADRON [Concomitant]
     Active Substance: DEXAMETHASONE
     Route: 042
     Dates: start: 20250724, end: 20250724
  15. DECADRON [Concomitant]
     Active Substance: DEXAMETHASONE
     Route: 042
     Dates: start: 20250828, end: 20250828
  16. POLARAMINE [Concomitant]
     Active Substance: DEXCHLORPHENIRAMINE MALEATE
     Indication: Gastric cancer stage IV
     Route: 042
     Dates: start: 20250918, end: 20250918
  17. POLARAMINE [Concomitant]
     Active Substance: DEXCHLORPHENIRAMINE MALEATE
     Route: 042
     Dates: start: 20250724, end: 20250724
  18. POLARAMINE [Concomitant]
     Active Substance: DEXCHLORPHENIRAMINE MALEATE
     Route: 042
     Dates: start: 20250828, end: 20250828
  19. PALONOSETRON [Concomitant]
     Active Substance: PALONOSETRON
     Indication: Gastric cancer stage IV
     Route: 042
     Dates: start: 20250724, end: 20250724
  20. PALONOSETRON [Concomitant]
     Active Substance: PALONOSETRON
     Route: 042
     Dates: start: 20250828, end: 20250828
  21. PALONOSETRON [Concomitant]
     Active Substance: PALONOSETRON
     Route: 042
     Dates: start: 20250918, end: 20250918
  22. CEFMETAZOLE [Concomitant]
     Active Substance: CEFMETAZOLE
     Indication: Enterocolitis
     Route: 065
     Dates: start: 20251003

REACTIONS (3)
  - Hypoalbuminaemia [Recovered/Resolved]
  - Gastritis [Recovered/Resolved]
  - Inappropriate schedule of product administration [Unknown]

NARRATIVE: CASE EVENT DATE: 20250828
